FAERS Safety Report 7329498-6 (Version None)
Quarter: 2011Q1

REPORT INFORMATION
  Report Type: 
  Country: None (occurrence: None)
  Receive Date: 20110303
  Receipt Date: 20110225
  Transmission Date: 20110831
  Serious: Yes (Death, Other)
  Sender: FDA-Public Use
  Company Number: US-PFIZER INC-HQWYE043017DEC04

PATIENT
  Sex: Female
  Weight: 126 kg

DRUGS (1)
  1. PREMPRO [Suspect]
     Indication: HORMONE REPLACEMENT THERAPY
     Dosage: UNK
     Route: 048
     Dates: start: 19990101, end: 20030101

REACTIONS (2)
  - BREAST CANCER FEMALE [None]
  - BREAST HYPERPLASIA [None]
